FAERS Safety Report 5699640-1 (Version None)
Quarter: 2008Q2

REPORT INFORMATION
  Report Type: 
  Country: None (occurrence: None)
  Receive Date: 20080410
  Receipt Date: 20080402
  Transmission Date: 20081010
  Serious: Yes (Other)
  Sender: FDA-Public Use
  Company Number: PHHY2008GB04598

PATIENT
  Sex: Male

DRUGS (1)
  1. TEGRETOL [Suspect]
     Dosage: 400 MG, TID
     Route: 048

REACTIONS (2)
  - FEEDING TUBE COMPLICATION [None]
  - GASTROINTESTINAL HAEMORRHAGE [None]
